FAERS Safety Report 13960307 (Version 2)
Quarter: 2018Q1

REPORT INFORMATION
  Report Type: Spontaneous
  Country: JP (occurrence: JP)
  Receive Date: 20170912
  Receipt Date: 20180102
  Transmission Date: 20180508
  Serious: Yes (Life-Threatening)
  Sender: FDA-Public Use
  Company Number: JP-BAYER-2017-172368

PATIENT
  Age: 39 Year
  Sex: Female
  Weight: 50 kg

DRUGS (4)
  1. MIRENA [Suspect]
     Active Substance: LEVONORGESTREL
     Indication: ADENOMYOSIS
  2. LAENNEC [Concomitant]
     Dosage: DAILY DOSE 2 ML
     Route: 042
     Dates: start: 20160304, end: 20160906
  3. MIRENA [Suspect]
     Active Substance: LEVONORGESTREL
     Indication: MENORRHAGIA
     Dosage: 20 MCG/24HR, CONT
     Route: 015
     Dates: start: 20151217, end: 20170911
  4. PLACENTA [Concomitant]
     Active Substance: SUS SCROFA PLACENTA
     Indication: MENOPAUSAL SYMPTOMS
     Dosage: DAILY DOSE 2 ML
     Route: 042
     Dates: start: 20160222, end: 20160906

REACTIONS (1)
  - Breast cancer [Recovered/Resolved with Sequelae]
